FAERS Safety Report 6444966-7 (Version None)
Quarter: 2009Q4

REPORT INFORMATION
  Report Type: 
  Country: None (occurrence: None)
  Receive Date: 20091118
  Receipt Date: 20091103
  Transmission Date: 20100525
  Serious: Yes (Death)
  Sender: FDA-Public Use
  Company Number: DE-PFIZER INC-2009298779

PATIENT
  Age: 77 Year
  Sex: Male

DRUGS (6)
  1. ARGATRA [Suspect]
     Indication: HEPARIN-INDUCED THROMBOCYTOPENIA
     Dosage: 23.7 MG, UNK
     Route: 042
     Dates: start: 20090726, end: 20090806
  2. ANIDULAFUNGIN [Concomitant]
     Indication: SEPSIS
     Dosage: 100 MG, UNK
  3. RIFAMPICIN [Concomitant]
     Dosage: 1200 MG, 1X/DAY
  4. GENTAMICIN [Concomitant]
     Dosage: 80 MG, 1X/DAY
  5. DAPTOMYCIN [Concomitant]
     Dosage: 500 MG, 1X/DAY
  6. NOREPINEPHRINE BITARTRATE [Concomitant]
     Dosage: 10 MG, 1X/DAY

REACTIONS (2)
  - MULTI-ORGAN FAILURE [None]
  - SEPSIS [None]
